FAERS Safety Report 7815577-3 (Version None)
Quarter: 2011Q4

REPORT INFORMATION
  Report Type: 
  Country: None (occurrence: None)
  Receive Date: 20111014
  Receipt Date: 20111011
  Transmission Date: 20120403
  Serious: Yes (Other)
  Sender: FDA-Public Use
  Company Number: US-PFIZER INC-2006032522

PATIENT
  Sex: Female
  Weight: 65.76 kg

DRUGS (9)
  1. METHADONE HYDROCHLORIDE [Suspect]
     Indication: NEURALGIA
     Route: 065
  2. BUSPAR [Suspect]
     Route: 065
  3. XANAX [Suspect]
     Indication: ANXIETY DISORDER
     Dosage: 1 MG, 3X/DAY
  4. SOMA [Suspect]
     Indication: FIBROMYALGIA
     Dosage: UNK
  5. ATIVAN [Suspect]
  6. XANAX [Suspect]
     Indication: PANIC ATTACK
     Dosage: 0.5 MG, 3X/DAY
     Dates: start: 19830101
  7. XANAX [Suspect]
     Dosage: UNK
     Route: 048
     Dates: start: 19830101
  8. NEURONTIN [Suspect]
     Indication: TRIGEMINAL NEURALGIA
     Dosage: 50 MG, 1X/DAY
     Route: 048
     Dates: start: 19980101, end: 19980101
  9. METHADONE HYDROCHLORIDE [Suspect]
     Indication: BONE PAIN

REACTIONS (33)
  - TRIGEMINAL NEURALGIA [None]
  - HALLUCINATION [None]
  - BONE PAIN [None]
  - FEELING ABNORMAL [None]
  - MOVEMENT DISORDER [None]
  - NUCLEAR MAGNETIC RESONANCE IMAGING ABNORMAL [None]
  - BRAIN NEOPLASM [None]
  - TRANSIENT ISCHAEMIC ATTACK [None]
  - MEMORY IMPAIRMENT [None]
  - BONE NEOPLASM [None]
  - DEPENDENCE [None]
  - GASTROOESOPHAGEAL REFLUX DISEASE [None]
  - BLOOD CHOLESTEROL INCREASED [None]
  - FRUSTRATION [None]
  - OSTEOPOROSIS [None]
  - MYALGIA [None]
  - NEURALGIA [None]
  - RESPIRATORY DISTRESS [None]
  - NERVE INJURY [None]
  - INTERVERTEBRAL DISC DEGENERATION [None]
  - BLOOD PRESSURE ABNORMAL [None]
  - ALCOHOLIC [None]
  - FIBROMYALGIA [None]
  - ACTIVITIES OF DAILY LIVING IMPAIRED [None]
  - HYPOAESTHESIA [None]
  - DRUG HYPERSENSITIVITY [None]
  - BONE DISORDER [None]
  - BODY HEIGHT DECREASED [None]
  - DRUG INTOLERANCE [None]
  - PNEUMONIA [None]
  - TEMPERATURE REGULATION DISORDER [None]
  - SKIN BURNING SENSATION [None]
  - CONVULSION [None]
